FAERS Safety Report 7224440-0 (Version None)
Quarter: 2011Q1

REPORT INFORMATION
  Report Type: 
  Country: None (occurrence: None)
  Receive Date: 20110113
  Receipt Date: 20110106
  Transmission Date: 20110831
  Serious: Yes (Other)
  Sender: FDA-Public Use
  Company Number: US-JNJFOC-20100704220

PATIENT
  Sex: Female

DRUGS (2)
  1. CIPROFLOXACIN [Suspect]
     Indication: PRODUCT USED FOR UNKNOWN INDICATION
     Route: 065
  2. LEVAQUIN [Suspect]
     Indication: URINARY TRACT INFECTION
     Route: 048

REACTIONS (6)
  - TENDON RUPTURE [None]
  - PERIARTHRITIS [None]
  - PAIN IN EXTREMITY [None]
  - OEDEMA PERIPHERAL [None]
  - ROTATOR CUFF SYNDROME [None]
  - MUSCULOSKELETAL PAIN [None]
